FAERS Safety Report 6694992-8 (Version None)
Quarter: 2010Q2

REPORT INFORMATION
  Report Type: 
  Country: None (occurrence: None)
  Receive Date: 20100423
  Receipt Date: 20100412
  Transmission Date: 20101027
  Serious: Yes (Hospitalization, Other)
  Sender: FDA-Public Use
  Company Number: PHBS2003JP02179

PATIENT
  Sex: Female
  Weight: 49 kg

DRUGS (5)
  1. GLEEVEC [Suspect]
     Indication: CHRONIC MYELOID LEUKAEMIA
     Dosage: 400 MG/D
     Route: 048
     Dates: start: 20020508, end: 20020530
  2. GLEEVEC [Suspect]
     Dosage: 300 MG/D
     Route: 048
     Dates: start: 20020531, end: 20030206
  3. IDARUBICIN HCL [Concomitant]
     Dosage: UNK
  4. ARA-C [Concomitant]
     Dosage: UNK
  5. RETINOIC ACID [Concomitant]
     Dosage: UNK

REACTIONS (26)
  - ACUTE PROMYELOCYTIC LEUKAEMIA [None]
  - BLAST CELL CRISIS [None]
  - BLOOD LACTATE DEHYDROGENASE INCREASED [None]
  - BRAIN NATRIURETIC PEPTIDE INCREASED [None]
  - C-REACTIVE PROTEIN INCREASED [None]
  - CARDIAC FAILURE [None]
  - CARDIOMEGALY [None]
  - CHRONIC MYELOID LEUKAEMIA [None]
  - CONJUNCTIVAL HAEMORRHAGE [None]
  - COUGH [None]
  - DIASTOLIC DYSFUNCTION [None]
  - DISSEMINATED INTRAVASCULAR COAGULATION [None]
  - GINGIVAL BLEEDING [None]
  - HAEMOGLOBIN DECREASED [None]
  - HAEMORRHAGIC DIATHESIS [None]
  - MALIGNANT NEOPLASM PROGRESSION [None]
  - NEOPLASM MALIGNANT [None]
  - PANCYTOPENIA [None]
  - PERICARDIAL EFFUSION [None]
  - PETECHIAE [None]
  - PLEURAL EFFUSION [None]
  - PNEUMONIA [None]
  - PRODUCTIVE COUGH [None]
  - PYREXIA [None]
  - THROMBOCYTOPENIA [None]
  - WHITE BLOOD CELL COUNT DECREASED [None]
